FAERS Safety Report 20792443 (Version 6)
Quarter: 2023Q1

REPORT INFORMATION
  Report Type: Other
  Country: CA (occurrence: None)
  Receive Date: 20220506
  Receipt Date: 20230110
  Transmission Date: 20230417
  Serious: Yes (Other)
  Sender: FDA-Public Use
  Company Number: CA-ROCHE-3091072

PATIENT
  Age: 33 Year
  Sex: Female

DRUGS (1)
  1. OCREVUS [Suspect]
     Active Substance: OCRELIZUMAB
     Indication: Relapsing-remitting multiple sclerosis
     Dosage: THEN 600 MG EVERY 6 MONTH, ON 15/JUN/2022, SHE RECEIVED RECENT DOSE OF OCRELIZUMAB 600 MG.
     Route: 042
     Dates: start: 20211109

REACTIONS (6)
  - SARS-CoV-2 test positive [Not Recovered/Not Resolved]
  - Nasopharyngitis [Recovering/Resolving]
  - Hypersensitivity [Unknown]
  - Inflammatory bowel disease [Unknown]
  - Respiratory tract infection [Recovered/Resolved]
  - Sinusitis [Recovered/Resolved]

NARRATIVE: CASE EVENT DATE: 20220429
